FAERS Safety Report 15491184 (Version 1)
Quarter: 2018Q4

REPORT INFORMATION
  Report Type: Report from Study
  Country: US (occurrence: US)
  Receive Date: 20181012
  Receipt Date: 20181012
  Transmission Date: 20190205
  Serious: Yes (Hospitalization, Other)
  Sender: FDA-Public Use
  Company Number: US-ROCHE-2151915

PATIENT
  Age: 50 Year
  Sex: Male
  Weight: 62.9 kg

DRUGS (1)
  1. VISMODEGIB. [Suspect]
     Active Substance: VISMODEGIB
     Indication: CHRONIC GRAFT VERSUS HOST DISEASE
     Dosage: ON 21/MAR/2018, LAST DOSE ADMINISTERED PRIOR TO ONSET OF SAE
     Route: 048
     Dates: start: 20180110

REACTIONS (8)
  - Anaemia [Unknown]
  - Syncope [Unknown]
  - Hypophosphataemia [Unknown]
  - Wound infection [Unknown]
  - Sepsis [Recovered/Resolved]
  - Hyperglycaemia [Unknown]
  - Lymphocyte count decreased [Unknown]
  - Hypotension [Recovered/Resolved]

NARRATIVE: CASE EVENT DATE: 20180321
